FAERS Safety Report 7970281-6 (Version None)
Quarter: 2011Q4

REPORT INFORMATION
  Report Type: 
  Country: None (occurrence: None)
  Receive Date: 20111122
  Receipt Date: 20110711
  Transmission Date: 20120403
  Serious: Yes (Other)
  Sender: FDA-Public Use
  Company Number: PHHY2011US60529

PATIENT
  Age: 64 Year
  Sex: Female
  Weight: 73 kg

DRUGS (12)
  1. LEVOTHYROXINE SODIUM [Concomitant]
  2. GILENYA [Suspect]
     Indication: MULTIPLE SCLEROSIS
     Dosage: 0.5 MG, DAILY
     Dates: start: 20110404
  3. FAMPRIDINE (FAMPRIDINE) [Concomitant]
  4. TIZANIDINE HYDROCHLORIDE [Concomitant]
  5. GLATIRAMER ACETATE (GLATIRAMER ACETATE) [Concomitant]
  6. EFFEXOR XR (VENALFAXINE) [Concomitant]
  7. RANITIDINE HYDROCHLORIDE [Concomitant]
  8. LISINOPRIL [Concomitant]
  9. OXYBURYNIN (OXYBUTYNIN) [Concomitant]
  10. RELAFEN [Concomitant]
  11. STOOL SOFTENER (DOCUSATE SODIUM) [Concomitant]
  12. BUPROPION HCL [Concomitant]

REACTIONS (3)
  - RASH [None]
  - PAIN [None]
  - HERPES ZOSTER [None]
